FAERS Safety Report 9022512 (Version 2)
Quarter: 2014Q1

REPORT INFORMATION
  Report Type: Spontaneous
  Country: US (occurrence: US)
  Receive Date: 20130118
  Receipt Date: 20140128
  Transmission Date: 20141002
  Serious: Yes (Hospitalization)
  Sender: FDA-Public Use
  Company Number: US-BAYER-2013-004495

PATIENT
  Age: 23 Year
  Sex: Female

DRUGS (9)
  1. YAZ [Suspect]
     Dosage: UNK
  2. BEYAZ [Suspect]
     Dosage: UNK
     Dates: start: 20100301, end: 20111031
  3. GIANVI [Suspect]
     Route: 048
  4. SAFYRAL [Suspect]
     Route: 048
  5. YASMIN [Suspect]
     Route: 048
  6. OCELLA [Suspect]
     Route: 048
  7. IBUPROFEN [Concomitant]
     Dosage: UNK
  8. LORAZEPAM [Concomitant]
     Dosage: UNK
  9. VEETIDS [Concomitant]
     Dosage: UNK

REACTIONS (7)
  - Embolic cerebral infarction [None]
  - Cerebrovascular accident [None]
  - Injury [None]
  - Emotional distress [None]
  - Depression [None]
  - Fear of death [None]
  - Nervousness [None]
